FAERS Safety Report 5635948-3 (Version None)
Quarter: 2008Q1

REPORT INFORMATION
  Report Type: 
  Country: None (occurrence: None)
  Receive Date: 20080224
  Receipt Date: 20080214
  Transmission Date: 20080703
  Serious: Yes (Other)
  Sender: FDA-Public Use
  Company Number: PHBS2008BR02207

PATIENT
  Age: 68 Year
  Sex: Female
  Weight: 60 kg

DRUGS (3)
  1. IMISEDIRSS [Concomitant]
     Indication: BLOOD PRESSURE
     Dosage: 25 MG, QD
     Route: 048
     Dates: start: 20070801
  2. HYDROCHLOROTHIAZIDE [Concomitant]
     Indication: BLOOD PRESSURE
     Dosage: 25 MG, QD
     Route: 048
  3. CODATEN [Suspect]
     Indication: ARTHRALGIA
     Dosage: 1 DF, Q8H
     Dates: start: 20080211, end: 20080212

REACTIONS (11)
  - BLOOD PRESSURE INCREASED [None]
  - ERUCTATION [None]
  - FEELING HOT [None]
  - GAIT DISTURBANCE [None]
  - HYPERTENSION [None]
  - JOINT SWELLING [None]
  - MEMORY IMPAIRMENT [None]
  - NAUSEA [None]
  - PALLOR [None]
  - PARAESTHESIA [None]
  - TREMOR [None]
